FAERS Safety Report 16320495 (Version 1)
Quarter: 2019Q2

REPORT INFORMATION
  Report Type: Spontaneous
  Country: US (occurrence: US)
  Receive Date: 20190516
  Receipt Date: 20190516
  Transmission Date: 20190711
  Serious: No
  Sender: FDA-Public Use
  Company Number: US-PFIZER INC-2019207507

PATIENT
  Age: 57 Year
  Sex: Female
  Weight: 117.4 kg

DRUGS (2)
  1. CELEBREX [Concomitant]
     Active Substance: CELECOXIB
     Indication: ARTHRITIS
  2. ADVIL [Suspect]
     Active Substance: IBUPROFEN
     Indication: PAIN
     Dosage: 400 MG TWICE A DAY

REACTIONS (3)
  - Abdominal discomfort [Unknown]
  - Epigastric discomfort [Unknown]
  - Flatulence [Unknown]
